FAERS Safety Report 10983290 (Version 1)
Quarter: 2015Q2

REPORT INFORMATION
  Report Type: Spontaneous
  Country: US (occurrence: None)
  Receive Date: 20150402
  Receipt Date: 20150402
  Transmission Date: 20150821
  Serious: Yes (Life-Threatening, Hospitalization, Disabling)
  Sender: FDA-Public Use
  Company Number: None

PATIENT
  Age: 37 Year
  Sex: Male
  Weight: 99.79 kg

DRUGS (3)
  1. ATIVAN [Concomitant]
     Active Substance: LORAZEPAM
  2. CHANTIX [Suspect]
     Active Substance: VARENICLINE TARTRATE
     Indication: SMOKING CESSATION THERAPY
     Dosage: 1 TABLET QD ORAL
     Route: 048
     Dates: start: 20150101, end: 20150222
  3. PROZAC [Concomitant]
     Active Substance: FLUOXETINE HYDROCHLORIDE

REACTIONS (10)
  - Aggression [None]
  - Abnormal behaviour [None]
  - Agitation [None]
  - Anger [None]
  - Suicidal ideation [None]
  - Nausea [None]
  - Emotional disorder [None]
  - Head banging [None]
  - Psychotic disorder [None]
  - Crying [None]

NARRATIVE: CASE EVENT DATE: 20150222
